FAERS Safety Report 7094611-5 (Version None)
Quarter: 2010Q4

REPORT INFORMATION
  Report Type: 
  Country: None (occurrence: None)
  Receive Date: 20101110
  Receipt Date: 20101103
  Transmission Date: 20110411
  Serious: Yes (Life-Threatening, Hospitalization)
  Sender: FDA-Public Use
  Company Number: FR-PFIZER INC-2010137857

PATIENT
  Age: 64 Year
  Sex: Male

DRUGS (10)
  1. VFEND [Suspect]
     Indication: INTERVERTEBRAL DISCITIS
     Dosage: 2 DF, 2X/DAY
     Route: 048
     Dates: start: 20100412, end: 20100412
  2. VFEND [Interacting]
     Dosage: 1 DF, 2X/DAY
     Route: 048
     Dates: start: 20100413
  3. OXYCONTIN [Interacting]
     Indication: PAIN
     Dosage: 20 MG, 2X/DAY
     Route: 048
     Dates: start: 20090615, end: 20100415
  4. OXYNORM [Interacting]
     Indication: PAIN
     Dosage: 5 MG, 2X/DAY
     Route: 048
     Dates: start: 20090615, end: 20100415
  5. AMLOR [Concomitant]
     Dosage: 10 MG, 1X/DAY
  6. PLAVIX [Concomitant]
     Dosage: 1 DF, 1X/DAY
  7. KARDEGIC [Concomitant]
     Dosage: 75 UNK, 1X/DAY
  8. PERINDOPRIL ERBUMINE [Concomitant]
     Dosage: 5 MG, 1X/DAY
  9. MIOREL [Concomitant]
     Dosage: 4 MG, 1X/DAY
  10. NOVOMIX [Concomitant]
     Dosage: 32 IU IN THE MORNING AND AT MIDDAY AND 30 IU IN THE EVENING
     Dates: start: 20040101

REACTIONS (4)
  - ACUTE RESPIRATORY FAILURE [None]
  - COMA [None]
  - DRUG INTERACTION [None]
  - MIOSIS [None]
